FAERS Safety Report 13418031 (Version 1)
Quarter: 2017Q2

REPORT INFORMATION
  Report Type: Spontaneous
  Country: US (occurrence: US)
  Receive Date: 20170407
  Receipt Date: 20170407
  Transmission Date: 20170830
  Serious: Yes (Other)
  Sender: FDA-Public Use
  Company Number: US-IMPAX LABORATORIES, INC-2017-IPXL-00844

PATIENT
  Age: 17 Year
  Sex: Male

DRUGS (7)
  1. ADRENACLICK [Suspect]
     Active Substance: EPINEPHRINE
     Indication: BLOOD PRESSURE DECREASED
     Dosage: UNK
     Route: 042
  2. DOPAMINE [Suspect]
     Active Substance: DOPAMINE\DOPAMINE HYDROCHLORIDE
     Dosage: UNK; INFUSION INCREASED
     Route: 065
  3. DOPAMINE [Suspect]
     Active Substance: DOPAMINE\DOPAMINE HYDROCHLORIDE
     Indication: BLOOD PRESSURE DECREASED
     Dosage: UNK
     Route: 065
  4. ADRENACLICK [Suspect]
     Active Substance: EPINEPHRINE
     Dosage: UNK; INFUSION INCREASED
     Route: 042
  5. LACTATED RINGERS [Concomitant]
     Active Substance: CALCIUM CHLORIDE\POTASSIUM CHLORIDE\SODIUM CHLORIDE\SODIUM LACTATE
     Dosage: 200 ML/HR
     Route: 042
  6. LACTATED RINGERS [Concomitant]
     Active Substance: CALCIUM CHLORIDE\POTASSIUM CHLORIDE\SODIUM CHLORIDE\SODIUM LACTATE
     Dosage: 300 ML/HR
     Route: 042
  7. LACTATED RINGERS [Concomitant]
     Active Substance: CALCIUM CHLORIDE\POTASSIUM CHLORIDE\SODIUM CHLORIDE\SODIUM LACTATE
     Indication: BLOOD PRESSURE DECREASED
     Dosage: UNK; MAINTANENCE INFUSION
     Route: 042

REACTIONS (6)
  - Nodal arrhythmia [Recovered/Resolved]
  - Hypoalbuminaemia [Unknown]
  - Hypokalaemia [Unknown]
  - Hypocalcaemia [Unknown]
  - Hypomagnesaemia [Unknown]
  - Drug ineffective [Recovered/Resolved]
